FAERS Safety Report 5734743-4 (Version None)
Quarter: 2008Q2

REPORT INFORMATION
  Report Type: 
  Country: None (occurrence: None)
  Receive Date: 20080508
  Receipt Date: 20080508
  Transmission Date: 20081010
  Serious: No
  Sender: FDA-Public Use
  Company Number: None

PATIENT
  Age: 65 Year
  Sex: Male

DRUGS (1)
  1. FENTANYL-100 [Suspect]
     Dosage: 50MCG EVERY 3 DAYS
     Dates: start: 20061222

REACTIONS (3)
  - AGITATION [None]
  - DEVICE MALFUNCTION [None]
  - OVERDOSE [None]
